FAERS Safety Report 8127413-9 (Version None)
Quarter: 2011Q4

REPORT INFORMATION
  Report Type: 
  Country: None (occurrence: None)
  Receive Date: 20111227
  Receipt Date: 20111027
  Transmission Date: 20120403
  Serious: No
  Sender: FDA-Public Use
  Company Number: PHEH2011US07930

PATIENT
  Age: 51 Year
  Sex: Male

DRUGS (6)
  1. GABAPENTIN [Concomitant]
  2. AMBIEN [Concomitant]
  3. VITAMINS NOS (VITAMINS NOS) [Concomitant]
  4. TRAZODONE HCL [Concomitant]
  5. GILENYA [Suspect]
     Dosage: 0.5 MG, QD, ORAL
     Route: 048
  6. BACLOFEN [Concomitant]

REACTIONS (1)
  - LIMB DISCOMFORT [None]
